FAERS Safety Report 6409025-8 (Version None)
Quarter: 2009Q4

REPORT INFORMATION
  Report Type: 
  Country: None (occurrence: None)
  Receive Date: 20091021
  Receipt Date: 20091013
  Transmission Date: 20100525
  Serious: Yes (Other)
  Sender: FDA-Public Use
  Company Number: US-AVENTIS-200913983US

PATIENT
  Sex: Female
  Weight: 90 kg

DRUGS (28)
  1. LANTUS [Suspect]
     Indication: DIABETES MELLITUS
     Route: 058
     Dates: start: 20070101, end: 20090801
  2. LANTUS [Suspect]
     Route: 058
     Dates: start: 20090801
  3. OPTICLIK (INSULIN INJECTION PEN) [Suspect]
     Indication: DIABETES MELLITUS
     Dosage: DOSE: UNK
     Dates: start: 20070101, end: 20090801
  4. VASOTEC                            /00935901/ [Concomitant]
     Indication: HYPERTENSION
     Dosage: DOSE: 2O
  5. INDERAL LA [Concomitant]
     Indication: HYPERTENSION
     Dosage: DOSE: 120 1 CAP
  6. SIMVASTATIN [Concomitant]
  7. ANTIVERT [Concomitant]
     Indication: LABYRINTHITIS
     Dosage: DOSE: 25 MG 1 TAB
  8. REGULAN                            /00091301/ [Concomitant]
     Dosage: DOSE: UNK
  9. ZOFRAN [Concomitant]
     Indication: NAUSEA
     Dosage: DOSE: 8 MG ONE TAB QAM AND QPM
  10. ZETIA [Concomitant]
     Dosage: DOSE: 10 MG 1 TAB
  11. AMITRIPTYLENE [Concomitant]
     Indication: ANTIDEPRESSANT THERAPY
     Dosage: DOSE: 10 MG 1 TAB
  12. PERCOCET [Concomitant]
     Indication: HEADACHE
     Dosage: DOSE: 5/325  2 TABS Q 4HRS
     Route: 048
  13. STADOL [Concomitant]
     Indication: HEADACHE
     Dosage: DOSE: 2 SPRAYS Q 3HR
  14. CLONIDINE [Concomitant]
     Indication: HYPERTENSION
     Dosage: DOSE: 0.1 MG ONE TAB
  15. NOVOLIN R [Concomitant]
     Dosage: DOSE: 35 UNITS IN THE AM AND 25 U AT SUPPER
     Route: 051
  16. NOVOLIN N [Concomitant]
     Dosage: DOSE: 15 U AT SUPPER
     Route: 051
  17. VALIUM [Concomitant]
     Indication: ANXIETY
     Dosage: DOSE: 5 MG ONE TAB QAM, TWO TABS HS
  18. TEMAZEPAM [Concomitant]
     Indication: NAUSEA
     Dosage: DOSE: 15 MG ONE CAP
  19. PHENERGAN HCL [Concomitant]
     Indication: NAUSEA
     Dosage: DOSE: 50 MG TWO TAB TID
  20. REGLAN [Concomitant]
     Indication: NAUSEA
     Dosage: DOSE: 5 MG 1 TAB QID
  21. REGLAN [Concomitant]
     Dosage: DOSE: 10 MG, 1 AND ONE HALF TABS QID
  22. COMPAZINE SUPPOSITORY [Concomitant]
     Indication: NAUSEA
     Dosage: DOSE: ONE QD
  23. OTHER ANALGESICS AND ANTIPYRETICS [Concomitant]
     Indication: HEADACHE
     Dosage: DOSE: 2 TABS Q4H
  24. PHILLIPS LAXCAPS [Concomitant]
     Indication: CONSTIPATION
     Dosage: DOSE: UNK
  25. SUDAFED S.A. [Concomitant]
     Indication: SINUS CONGESTION
     Dosage: DOSE: 1 TAB
  26. AFRIN [Concomitant]
     Dosage: DOSE: UNK
     Route: 045
  27. GENTEAL                            /00445101/ [Concomitant]
     Dosage: DOSE: UNK
     Route: 047
  28. NOVOLOG [Concomitant]
     Dosage: DOSE: UNK

REACTIONS (6)
  - DEVICE MALFUNCTION [None]
  - DIABETIC RETINOPATHY [None]
  - LABYRINTHITIS [None]
  - PRODUCT QUALITY ISSUE [None]
  - RETINAL HAEMORRHAGE [None]
  - SEBORRHOEIC KERATOSIS [None]
